FAERS Safety Report 8292508-6 (Version None)
Quarter: 2012Q2

REPORT INFORMATION
  Report Type: 
  Country: None (occurrence: None)
  Receive Date: 20120417
  Receipt Date: 20110308
  Transmission Date: 20120825
  Serious: No
  Sender: FDA-Public Use
  Company Number: US-ASTRAZENECA-2011SE13166

PATIENT
  Age: 1015 Month
  Sex: Female
  Weight: 81.6 kg

DRUGS (6)
  1. CADIZEM [Concomitant]
     Indication: HYPERTENSION
  2. ISOSORBIDE DINITRATE [Concomitant]
  3. NEXIUM [Suspect]
     Indication: GASTROOESOPHAGEAL REFLUX DISEASE
     Route: 048
     Dates: start: 20030101
  4. ASPIRIN [Concomitant]
     Indication: CARDIAC DISORDER
  5. TOPROL-XL [Concomitant]
     Indication: HYPERTENSION
  6. PRAVASTATIN [Concomitant]
     Indication: BLOOD CHOLESTEROL INCREASED

REACTIONS (1)
  - TENDONITIS [None]
